FAERS Safety Report 13367931 (Version 1)
Quarter: 2017Q1

REPORT INFORMATION
  Report Type: Spontaneous
  Country: US (occurrence: US)
  Receive Date: 20170324
  Receipt Date: 20170324
  Transmission Date: 20170429
  Serious: Yes (Other)
  Sender: FDA-Public Use
  Company Number: US-ELI_LILLY_AND_COMPANY-US201608003017

PATIENT
  Sex: Male

DRUGS (2)
  1. CYMBALTA [Suspect]
     Active Substance: DULOXETINE HYDROCHLORIDE
     Indication: DEPRESSION
     Dosage: 30 MG, BID
     Route: 048
     Dates: start: 2014
  2. CYMBALTA [Suspect]
     Active Substance: DULOXETINE HYDROCHLORIDE
     Dosage: 90 MG, QD
     Route: 048
     Dates: start: 201404

REACTIONS (12)
  - Suicidal ideation [Unknown]
  - Lethargy [Unknown]
  - Sensory disturbance [Unknown]
  - Irritability [Unknown]
  - Confusional state [Unknown]
  - Affect lability [Unknown]
  - Paraesthesia [Unknown]
  - Insomnia [Unknown]
  - Dysphoria [Unknown]
  - Tinnitus [Unknown]
  - Agitation [Unknown]
  - Drug withdrawal syndrome [Unknown]
